FAERS Safety Report 20627517 (Version 2)
Quarter: 2022Q2

REPORT INFORMATION
  Report Type: Spontaneous
  Country: US (occurrence: None)
  Receive Date: 20220323
  Receipt Date: 20220511
  Transmission Date: 20220721
  Serious: No
  Sender: FDA-Public Use
  Company Number: 2022A120746

PATIENT
  Sex: Female

DRUGS (1)
  1. CALQUENCE [Suspect]
     Active Substance: ACALABRUTINIB
     Dosage: UNKNOWN
     Route: 048

REACTIONS (6)
  - Furuncle [Unknown]
  - Mass [Unknown]
  - Pain [Unknown]
  - Mobility decreased [Unknown]
  - Erythema [Unknown]
  - Headache [Recovered/Resolved]
